FAERS Safety Report 12931113 (Version 2)
Quarter: 2016Q4

REPORT INFORMATION
  Report Type: Report from Study
  Country: US (occurrence: US)
  Receive Date: 20161110
  Receipt Date: 20161207
  Transmission Date: 20170207
  Serious: Yes (Death, Hospitalization)
  Sender: FDA-Public Use
  Company Number: US-ACTELION-A-US2016-143899

PATIENT
  Age: 78 Year
  Sex: Female

DRUGS (2)
  1. VELETRI [Suspect]
     Active Substance: EPOPROSTENOL
     Indication: PULMONARY HYPERTENSION
     Dosage: 32.69 NG/KG, PER MIN
     Route: 042
     Dates: start: 20150629, end: 20161124
  2. ADCIRCA [Concomitant]
     Active Substance: TADALAFIL

REACTIONS (12)
  - Fluid retention [Unknown]
  - Disease progression [Fatal]
  - Dyspnoea [Unknown]
  - Pulmonary hypertension [Fatal]
  - Interstitial lung disease [Unknown]
  - Weight increased [Unknown]
  - Hypoxia [Unknown]
  - Condition aggravated [Unknown]
  - Peripheral swelling [Unknown]
  - Device infusion issue [Unknown]
  - Pulmonary arterial hypertension [Unknown]
  - Dyspnoea exertional [Unknown]

NARRATIVE: CASE EVENT DATE: 20161124
